FAERS Safety Report 13829223 (Version 1)
Quarter: 2017Q3

REPORT INFORMATION
  Report Type: Spontaneous
  Country: US (occurrence: US)
  Receive Date: 20170803
  Receipt Date: 20170803
  Transmission Date: 20171127
  Serious: Yes (Other)
  Sender: FDA-Public Use
  Company Number: None

PATIENT
  Age: 53 Year
  Sex: Female
  Weight: 66.74 kg

DRUGS (1)
  1. ROSUVASTATIN 20MG [Suspect]
     Active Substance: ROSUVASTATIN
     Indication: ADVERSE REACTION
     Dosage: BEFORE 9-15-16
     Route: 048
     Dates: end: 20160915

REACTIONS (1)
  - Myalgia [None]

NARRATIVE: CASE EVENT DATE: 20170120
